FAERS Safety Report 15875874 (Version 2)
Quarter: 2019Q2

REPORT INFORMATION
  Report Type: Report from Study
  Country: BR (occurrence: BR)
  Receive Date: 20190126
  Receipt Date: 20190524
  Transmission Date: 20190711
  Serious: Yes (Death, Hospitalization)
  Sender: FDA-Public Use
  Company Number: PHHY2019BR016437

PATIENT
  Age: 14 Year
  Sex: Female
  Weight: 40 kg

DRUGS (2)
  1. OMNITROPE [Suspect]
     Active Substance: SOMATROPIN
     Indication: GROWTH DISORDER
     Dosage: UNK UNK, QD
     Route: 058
     Dates: start: 2018
  2. LECTRUM [Suspect]
     Active Substance: LEUPROLIDE ACETATE
     Indication: DELAYED PUBERTY
     Dosage: EVERY 24 DAYS, STARTED WHEN PATIENT WAS 10 YEARS OLD
     Route: 030

REACTIONS (5)
  - Coma [Fatal]
  - Headache [Fatal]
  - Pyrexia [Fatal]
  - Brain oedema [Fatal]
  - Carotid artery thrombosis [Fatal]

NARRATIVE: CASE EVENT DATE: 20181229
